FAERS Safety Report 22380293 (Version 1)
Quarter: 2023Q2

REPORT INFORMATION
  Report Type: Spontaneous
  Country: US (occurrence: US)
  Receive Date: 20230529
  Receipt Date: 20230529
  Transmission Date: 20230721
  Serious: Yes (Hospitalization)
  Sender: FDA-Public Use
  Company Number: US-CATALYST PHARMACEUTICALS, INC-US-CATA-23-00275

PATIENT
  Age: 56 Year
  Sex: Male

DRUGS (18)
  1. FIRDAPSE [Suspect]
     Active Substance: AMIFAMPRIDINE PHOSPHATE
     Indication: Myasthenic syndrome
     Dosage: 1 TABLET BY MOUTH THREE TIMES DAILY FOR THREE DAYS INCREASE BY 0.5 TABLETS  EVERY THREE DAYS TO A MA
     Route: 048
     Dates: start: 20220903
  2. FIRDAPSE [Suspect]
     Active Substance: AMIFAMPRIDINE PHOSPHATE
     Dosage: 80 MG
     Route: 048
  3. FIRDAPSE [Suspect]
     Active Substance: AMIFAMPRIDINE PHOSPHATE
     Dosage: 2 TABLETS 2 TIMES PER DAY
     Route: 048
     Dates: start: 20230225
  4. ACTEMRA [Concomitant]
     Active Substance: TOCILIZUMAB
     Indication: Product used for unknown indication
     Dosage: 200 MILLIGRAM, ONCE A MONTH
     Route: 042
  5. CARBAMAZEPINE [Concomitant]
     Active Substance: CARBAMAZEPINE
     Indication: Product used for unknown indication
     Dosage: 200 MG DAILY
     Route: 065
  6. CLONAZEPAM [Concomitant]
     Active Substance: CLONAZEPAM
     Indication: Product used for unknown indication
     Dosage: 0.5 MG DAILY AS NEEDED
     Route: 065
  7. FLUOXETINE [Concomitant]
     Active Substance: FLUOXETINE HYDROCHLORIDE
     Indication: Product used for unknown indication
     Dosage: 60 MG DAILY
     Route: 065
  8. FOLIC ACID [Concomitant]
     Active Substance: FOLIC ACID
     Indication: Product used for unknown indication
     Dosage: 1 MG DAILY
     Route: 065
  9. HYDROCHLOROTHIAZIDE [Concomitant]
     Active Substance: HYDROCHLOROTHIAZIDE
     Indication: Product used for unknown indication
     Dosage: 50 MG DAILY
     Route: 065
  10. METFORMIN [Concomitant]
     Active Substance: METFORMIN HYDROCHLORIDE
     Indication: Product used for unknown indication
     Dosage: 1000 MG DAILY
     Route: 065
  11. METHOTREXATE [Concomitant]
     Active Substance: METHOTREXATE
     Indication: Product used for unknown indication
     Dosage: 10 MG ONCE A WEEK
     Route: 065
  12. NEXIUM [Concomitant]
     Active Substance: ESOMEPRAZOLE MAGNESIUM
     Indication: Product used for unknown indication
     Dosage: 20 MG DAILY
     Route: 065
  13. ONDANSETRON [Concomitant]
     Active Substance: ONDANSETRON
     Indication: Nausea
     Dosage: 4 MG AS NEEDED
     Route: 065
  14. PRAVASTATIN [Concomitant]
     Active Substance: PRAVASTATIN
     Indication: Product used for unknown indication
     Dosage: 80 MG AT BEDTIME
     Route: 065
  15. PREDNISONE [Concomitant]
     Active Substance: PREDNISONE
     Indication: Product used for unknown indication
     Dosage: 20 MG THREE TIMES A DAY
     Route: 065
  16. PROMETHAZINE [Concomitant]
     Active Substance: PROMETHAZINE HYDROCHLORIDE
     Indication: Nausea
     Dosage: UP TO 25 MG AS NEEDED
     Route: 065
  17. PROPRANOLOL [Concomitant]
     Active Substance: PROPRANOLOL HYDROCHLORIDE
     Indication: Product used for unknown indication
     Dosage: 40 MG THREE TIMES A DAY
     Route: 065
  18. ROPINIROLE [Concomitant]
     Active Substance: ROPINIROLE
     Indication: Product used for unknown indication
     Dosage: 1 MG AT BEDTIME
     Route: 065

REACTIONS (2)
  - Coronary artery occlusion [Recovering/Resolving]
  - Contraindicated product administered [Unknown]

NARRATIVE: CASE EVENT DATE: 20230510
